FAERS Safety Report 20207107 (Version 1)
Quarter: 2021Q4

REPORT INFORMATION
  Report Type: Spontaneous
  Country: US (occurrence: None)
  Receive Date: 20211219
  Receipt Date: 20211219
  Transmission Date: 20220303
  Serious: Yes (Other)
  Sender: FDA-Public Use
  Company Number: None

PATIENT
  Age: 64 Year
  Sex: Female
  Weight: 77.4 kg

DRUGS (3)
  1. TYMLOS [Suspect]
     Active Substance: ABALOPARATIDE
     Indication: Osteoporosis
     Dosage: OTHER QUANTITY : 1 INJECTION(S);?FREQUENCY : AT BEDTIME;?
     Route: 058
  2. D2 vit. D 50,000 [Concomitant]
  3. FISH OIL [Concomitant]
     Active Substance: FISH OIL

REACTIONS (4)
  - Arthritis [None]
  - Bone pain [None]
  - Paraesthesia [None]
  - Heart rate increased [None]

NARRATIVE: CASE EVENT DATE: 20210112
